FAERS Safety Report 25362288 (Version 1)
Quarter: 2025Q2

REPORT INFORMATION
  Report Type: Spontaneous
  Country: US (occurrence: None)
  Receive Date: 20250524
  Receipt Date: 20250524
  Transmission Date: 20250716
  Serious: Yes (Other)
  Sender: FDA-CTU
  Company Number: None

PATIENT
  Age: 40 Year
  Sex: Female
  Weight: 58.5 kg

DRUGS (1)
  1. ZYRTEC [Suspect]
     Active Substance: CETIRIZINE HYDROCHLORIDE
     Indication: Seasonal allergy

REACTIONS (6)
  - Product dose omission in error [None]
  - Pruritus [None]
  - Pruritus [None]
  - Pregnancy [None]
  - Exposure during pregnancy [None]
  - Wrong technique in product usage process [None]

NARRATIVE: CASE EVENT DATE: 20150501
